FAERS Safety Report 10208464 (Version 2)
Quarter: 2014Q2

REPORT INFORMATION
  Report Type: Spontaneous
  Country: US (occurrence: US)
  Receive Date: 20140530
  Receipt Date: 20140530
  Transmission Date: 20141212
  Serious: Yes (Other)
  Sender: FDA-Public Use
  Company Number: US-ENDO PHARMACEUTICALS INC.-SPLN20130102

PATIENT
  Age: 9 Year
  Sex: Female
  Weight: 45.4 kg

DRUGS (1)
  1. SUPPRELIN LA [Suspect]
     Indication: PRODUCT USED FOR UNKNOWN INDICATION
     Route: 058
     Dates: start: 2012, end: 20131121

REACTIONS (5)
  - Implant site infection [Recovered/Resolved]
  - Implant site discharge [Recovered/Resolved]
  - Implant site pain [Recovered/Resolved]
  - Implant site erythema [Recovered/Resolved]
  - Device extrusion [Recovered/Resolved]
